FAERS Safety Report 8078573-X (Version None)
Quarter: 2012Q1

REPORT INFORMATION
  Report Type: 
  Country: None (occurrence: None)
  Receive Date: 20120127
  Receipt Date: 20110103
  Transmission Date: 20120608
  Serious: No
  Sender: FDA-Public Use
  Company Number: US-ABBOTT-11P-163-0694929-00

PATIENT
  Age: 44 Year
  Sex: Male

DRUGS (4)
  1. VERAMIST [Concomitant]
     Indication: HYPERSENSITIVITY
  2. RESPA AR [Concomitant]
     Indication: HYPERSENSITIVITY
  3. ACIPHEX [Concomitant]
     Indication: GASTROOESOPHAGEAL REFLUX DISEASE
  4. HUMIRA [Suspect]
     Indication: ANKYLOSING SPONDYLITIS
     Dates: start: 20101105, end: 20101227

REACTIONS (4)
  - MUCOSAL DRYNESS [None]
  - SINUSITIS [None]
  - UPPER-AIRWAY COUGH SYNDROME [None]
  - COUGH [None]
